FAERS Safety Report 4390809-5 (Version None)
Quarter: 2004Q3

REPORT INFORMATION
  Report Type: 
  Country: None (occurrence: None)
  Receive Date: 20040706
  Receipt Date: 20040706
  Transmission Date: 20050211
  Serious: Yes (Hospitalization)
  Sender: FDA-Public Use
  Company Number: None

PATIENT
  Age: 76 Year
  Sex: Female
  Weight: 84.4 kg

DRUGS (13)
  1. TEQUIN [Suspect]
     Dosage: 400 MG PO Q DAY FOR 10 DAYS THERAPY
     Route: 048
  2. ACIPHEX [Concomitant]
  3. PREVACID [Concomitant]
  4. LIPITOR [Concomitant]
  5. ZAROXOLYN [Concomitant]
  6. BEXTRA [Concomitant]
  7. CLONIDINE HCL [Concomitant]
  8. TARKA [Concomitant]
  9. ECOTRIN [Concomitant]
  10. ACTOS [Concomitant]
  11. GUAIFENESIN [Concomitant]
  12. KCL TAB [Concomitant]
  13. ULTRACET [Concomitant]

REACTIONS (4)
  - DYSTONIA [None]
  - MYOCLONUS [None]
  - RENAL FAILURE ACUTE [None]
  - TREMOR [None]
